FAERS Safety Report 7479489-X (Version None)
Quarter: 2011Q2

REPORT INFORMATION
  Report Type: 
  Country: None (occurrence: None)
  Receive Date: 20110513
  Receipt Date: 20110509
  Transmission Date: 20111010
  Serious: Yes (Hospitalization)
  Sender: FDA-Public Use
  Company Number: US-GILEAD-2011-0036798

PATIENT
  Sex: Female

DRUGS (3)
  1. FLOLAN [Concomitant]
  2. LETAIRIS [Suspect]
     Indication: PULMONARY HYPERTENSION
     Route: 048
     Dates: start: 20080729
  3. LETAIRIS [Suspect]
     Indication: PULMONARY VENO-OCCLUSIVE DISEASE

REACTIONS (1)
  - PULMONARY ARTERIAL HYPERTENSION [None]
